FAERS Safety Report 6537310-8 (Version None)
Quarter: 2010Q1

REPORT INFORMATION
  Report Type: 
  Country: None (occurrence: None)
  Receive Date: 20100110
  Receipt Date: 20100105
  Transmission Date: 20100710
  Serious: Yes (Death)
  Sender: FDA-Public Use
  Company Number: 2010SP000778

PATIENT
  Age: 51 Year
  Sex: Male

DRUGS (1)
  1. TEMODAR [Suspect]

REACTIONS (1)
  - DEATH [None]
